FAERS Safety Report 12158022 (Version 1)
Quarter: 2016Q1

REPORT INFORMATION
  Report Type: Spontaneous
  Country: US (occurrence: US)
  Receive Date: 20160308
  Receipt Date: 20160308
  Transmission Date: 20160526
  Serious: No
  Sender: FDA-Public Use
  Company Number: US-JNJFOC-20150119453

PATIENT
  Sex: Male

DRUGS (10)
  1. VITAMIN B12 [Concomitant]
     Active Substance: CYANOCOBALAMIN
  2. IMBRUVICA [Suspect]
     Active Substance: IBRUTINIB
     Indication: CHRONIC LYMPHOCYTIC LEUKAEMIA
     Route: 048
     Dates: start: 20140913
  3. ACTOS [Concomitant]
     Active Substance: PIOGLITAZONE HYDROCHLORIDE
  4. METFORMIN [Concomitant]
     Active Substance: METFORMIN HYDROCHLORIDE
  5. NIACIN. [Concomitant]
     Active Substance: NIACIN
  6. LISINOPRIL. [Concomitant]
     Active Substance: LISINOPRIL
  7. METOPROLOL. [Concomitant]
     Active Substance: METOPROLOL
  8. GLIPIZIDE XL [Concomitant]
     Active Substance: GLIPIZIDE
  9. SYNTHROID [Concomitant]
     Active Substance: LEVOTHYROXINE SODIUM
  10. FERROUS SULFATE [Concomitant]
     Active Substance: FERROUS SULFATE\FERROUS SULFATE, DRIED

REACTIONS (2)
  - Cardiac failure congestive [Unknown]
  - Contusion [Recovered/Resolved]
